FAERS Safety Report 5082164-2 (Version None)
Quarter: 2006Q3

REPORT INFORMATION
  Report Type: 
  Country: None (occurrence: None)
  Receive Date: 20060817
  Receipt Date: 20060807
  Transmission Date: 20061208
  Serious: Yes (Death, Hospitalization)
  Sender: FDA-Public Use
  Company Number: AU-JNJFOC-20060705390

PATIENT
  Age: 34 Year
  Sex: Male
  Weight: 40 kg

DRUGS (18)
  1. RISPERDAL [Suspect]
     Indication: SCHIZOPHRENIA
     Route: 048
  2. TRIMETHOPRIM + SULFAMETHOXAZOLE [Suspect]
     Indication: PROPHYLAXIS
  3. ISONIAZID [Suspect]
     Indication: PULMONARY TUBERCULOSIS
     Route: 048
  4. RIFAMPICIN [Suspect]
     Indication: PULMONARY TUBERCULOSIS
     Route: 048
  5. ETHAMBUTOL HCL [Suspect]
     Indication: PULMONARY TUBERCULOSIS
     Route: 048
  6. PYRAZINAMIDE [Suspect]
     Indication: PULMONARY TUBERCULOSIS
     Route: 048
  7. PYRIDOXINE HYDROCHLORIDE INJ [Suspect]
     Indication: PROPHYLAXIS
     Route: 048
  8. FLUCONAZOLE [Suspect]
     Indication: CANDIDIASIS
     Route: 048
  9. RIFABUTIN [Suspect]
     Indication: INFECTION
     Route: 048
  10. AZITHROMYCIN [Suspect]
     Indication: DRUG USE FOR UNKNOWN INDICATION
     Route: 048
  11. LORAZEPAM [Concomitant]
     Indication: SCHIZOPHRENIA
  12. SULFADOXINE [Concomitant]
     Indication: PROPHYLAXIS
  13. NILSTAT [Concomitant]
     Indication: CANDIDIASIS
  14. PENICILLIN [Concomitant]
     Indication: SYPHILIS
  15. METOCLOPRAMIDE HYDROCHLORIDE [Concomitant]
     Indication: VOMITING
  16. METOCLOPRAMIDE HYDROCHLORIDE [Concomitant]
     Indication: NAUSEA
  17. TEMAZEPAM [Concomitant]
     Indication: SLEEP DISORDER
  18. CENTRUM [Concomitant]

REACTIONS (2)
  - DEATH [None]
  - HEPATIC ENZYME INCREASED [None]
